FAERS Safety Report 5202224-2 (Version None)
Quarter: 2007Q1

REPORT INFORMATION
  Report Type: 
  Country: None (occurrence: None)
  Receive Date: 20070109
  Receipt Date: 20070105
  Transmission Date: 20070707
  Serious: Yes (Other)
  Sender: FDA-Public Use
  Company Number: US-GLAXOSMITHKLINE-A0634069A

PATIENT
  Age: 40 Year
  Sex: Female

DRUGS (1)
  1. NICODERM CQ [Suspect]
     Indication: SMOKING CESSATION THERAPY
     Route: 062
     Dates: start: 20070103, end: 20070103

REACTIONS (22)
  - AGITATION [None]
  - ANXIETY [None]
  - ARTHRALGIA [None]
  - CHEST DISCOMFORT [None]
  - CONVULSION [None]
  - DISTURBANCE IN ATTENTION [None]
  - DYSKINESIA [None]
  - DYSPNOEA [None]
  - FATIGUE [None]
  - FEELING ABNORMAL [None]
  - FEELING JITTERY [None]
  - FORMICATION [None]
  - HEADACHE [None]
  - IRRITABILITY [None]
  - MALAISE [None]
  - MENTAL IMPAIRMENT [None]
  - MUSCLE SPASMS [None]
  - NAUSEA [None]
  - OVERDOSE [None]
  - PARALYSIS [None]
  - TENSION [None]
  - TREMOR [None]
